FAERS Safety Report 8883236 (Version 1)
Quarter: 2012Q4

REPORT INFORMATION
  Report Type: Report from Study
  Country: US (occurrence: US)
  Receive Date: 20121102
  Receipt Date: 20121102
  Transmission Date: 20130627
  Serious: No
  Sender: FDA-Public Use
  Company Number: US-009507513-2012SP033684

PATIENT
  Age: 51 Year
  Sex: Female
  Weight: 98.41 kg

DRUGS (6)
  1. RIBAVIRIN [Suspect]
     Indication: HEPATITIS C
     Dosage: UNK UNK, BID
     Route: 048
  2. GS-5885 [Suspect]
     Indication: HEPATITIS C
     Dosage: 90 mg, qd
     Route: 048
  3. INVESTIGATIONAL DRUG [Suspect]
     Dosage: 6 UNK, UNK
     Route: 048
     Dates: start: 20120119, end: 20120207
  4. INVESTIGATIONAL DRUG [Suspect]
     Indication: HEPATITIS C
     Dosage: 200 mg, qd
     Route: 048
     Dates: start: 20120119, end: 20120201
  5. INVESTIGATIONAL DRUG [Suspect]
     Dosage: 3 DF, UNK
     Route: 048
     Dates: start: 20120119, end: 20120207
  6. INVESTIGATIONAL DRUG [Suspect]
     Indication: HEPATITIS C
     Dosage: 30 mg, bid
     Route: 048

REACTIONS (1)
  - Overdose [Unknown]
